FAERS Safety Report 6450704-4 (Version None)
Quarter: 2009Q4

REPORT INFORMATION
  Report Type: 
  Country: None (occurrence: None)
  Receive Date: 20091123
  Receipt Date: 20091116
  Transmission Date: 20100525
  Serious: Yes (Death, Other)
  Sender: FDA-Public Use
  Company Number: US-ROCHE-669445

PATIENT
  Age: 45 Year
  Sex: Male

DRUGS (6)
  1. DACLIZUMAB [Suspect]
     Indication: GRAFT VERSUS HOST DISEASE
     Route: 065
  2. PREDNISONE [Suspect]
     Indication: GRAFT VERSUS HOST DISEASE
     Route: 065
  3. SIROLIMUS [Suspect]
     Indication: GRAFT VERSUS HOST DISEASE
     Route: 065
  4. TACROLIMUS [Suspect]
     Indication: GRAFT VERSUS HOST DISEASE
     Route: 065
  5. CYCLOSPORINE [Suspect]
     Indication: GRAFT VERSUS HOST DISEASE
     Route: 065
  6. IMATINIB [Suspect]
     Route: 065

REACTIONS (3)
  - BACTERIAL SEPSIS [None]
  - CHRONIC MYELOID LEUKAEMIA [None]
  - HEPATIC CIRRHOSIS [None]
